FAERS Safety Report 8199128-2 (Version None)
Quarter: 2012Q1

REPORT INFORMATION
  Report Type: 
  Country: None (occurrence: None)
  Receive Date: 20120309
  Receipt Date: 20120302
  Transmission Date: 20120608
  Serious: Yes (Other)
  Sender: FDA-Public Use
  Company Number: US-US-EMD SERONO, INC.-7015265

PATIENT
  Sex: Male
  Weight: 63 kg

DRUGS (2)
  1. REBIF [Suspect]
     Dates: start: 20100601, end: 20100601
  2. REBIF [Suspect]
     Indication: MULTIPLE SCLEROSIS
     Route: 058
     Dates: start: 20040223, end: 20100401

REACTIONS (3)
  - MALAISE [None]
  - THYROID NEOPLASM [None]
  - INJECTION SITE PAIN [None]
